FAERS Safety Report 8193530-0 (Version None)
Quarter: 2012Q1

REPORT INFORMATION
  Report Type: 
  Country: None (occurrence: None)
  Receive Date: 20120308
  Receipt Date: 20120305
  Transmission Date: 20120608
  Serious: Yes (Other)
  Sender: FDA-Public Use
  Company Number: PT-ROCHE-1011964

PATIENT
  Age: 23 Year
  Sex: Male
  Weight: 90 kg

DRUGS (4)
  1. XENICAL [Suspect]
     Indication: OVERWEIGHT
     Route: 048
     Dates: start: 20110905, end: 20110930
  2. XENICAL [Suspect]
     Route: 048
     Dates: start: 20111001, end: 20111030
  3. XENICAL [Suspect]
     Route: 048
     Dates: start: 20120305
  4. XENICAL [Suspect]
     Route: 048
     Dates: start: 20111101, end: 20111220

REACTIONS (3)
  - NEPHROLITHIASIS [None]
  - ACNE [None]
  - ABDOMINAL PAIN [None]
